FAERS Safety Report 7988043-2 (Version None)
Quarter: 2011Q4

REPORT INFORMATION
  Report Type: 
  Country: None (occurrence: None)
  Receive Date: 20111216
  Receipt Date: 20101202
  Transmission Date: 20120403
  Serious: No
  Sender: FDA-Public Use
  Company Number: US-BRISTOL-MYERS SQUIBB COMPANY-15419328

PATIENT
  Sex: Male
  Weight: 100 kg

DRUGS (3)
  1. ABILIFY [Suspect]
  2. DEPAKOTE [Suspect]
  3. CLONIDINE [Suspect]

REACTIONS (4)
  - INSOMNIA [None]
  - DECREASED APPETITE [None]
  - AGGRESSION [None]
  - WEIGHT INCREASED [None]
